FAERS Safety Report 12952854 (Version 2)
Quarter: 2016Q4

REPORT INFORMATION
  Report Type: Spontaneous
  Country: US (occurrence: US)
  Receive Date: 20161117
  Receipt Date: 20161128
  Transmission Date: 20170207
  Serious: Yes (Hospitalization)
  Sender: FDA-Public Use
  Company Number: US-PFIZER INC-2016527971

PATIENT
  Age: 64 Year
  Sex: Male

DRUGS (10)
  1. CEFTAZIDIME. [Suspect]
     Active Substance: CEFTAZIDIME
     Indication: FEBRILE NEUTROPENIA
     Dosage: 8 G, DAILY (HOSPITAL DAY 2,3)
     Route: 041
  2. COLISTIN [Concomitant]
     Active Substance: COLISTIN
     Indication: FEBRILE NEUTROPENIA
     Dosage: 300 MG, UNK
     Route: 042
  3. CEFTAZIDIME. [Suspect]
     Active Substance: CEFTAZIDIME
     Dosage: 16 G, DAILY (HOSPITAL DAY 4,5,6,7)
     Route: 041
  4. CEFTAZIDIME. [Suspect]
     Active Substance: CEFTAZIDIME
     Indication: FEBRILE NEUTROPENIA
     Dosage: 2 G, UNK (2 G IVX1) (HOSPITAL DAY 1)
     Route: 042
  5. RITUXIMAB [Concomitant]
     Active Substance: RITUXIMAB
     Indication: CHRONIC LYMPHOCYTIC LEUKAEMIA
     Dosage: UNK
  6. ALEMTUZUMAB [Concomitant]
     Active Substance: ALEMTUZUMAB
     Indication: CHRONIC LYMPHOCYTIC LEUKAEMIA
     Dosage: UNK
  7. CEFTAZIDIME. [Suspect]
     Active Substance: CEFTAZIDIME
     Dosage: 19.2 G, DAILY (HOSPITAL DAY 8,9,10,11)
     Route: 041
  8. LINEZOLID. [Concomitant]
     Active Substance: LINEZOLID
     Dosage: 600 MG, UNK (600 MG IVX1)
     Route: 042
  9. SULFAMETHOXAZOLE AND TRIMETHOPRIM [Concomitant]
     Active Substance: SULFAMETHOXAZOLE\TRIMETHOPRIM
     Indication: PROPHYLAXIS
     Route: 048
  10. CEFPODOXIME [Concomitant]
     Active Substance: CEFPODOXIME
     Indication: PROPHYLAXIS

REACTIONS (1)
  - Epilepsy [Recovered/Resolved]
